FAERS Safety Report 20885531 (Version 1)
Quarter: 2022Q2

REPORT INFORMATION
  Report Type: Spontaneous
  Country: US (occurrence: None)
  Receive Date: 20220527
  Receipt Date: 20220527
  Transmission Date: 20220720
  Serious: No
  Sender: FDA-Public Use
  Company Number: 2022A196147

PATIENT
  Sex: Female
  Weight: 45.8 kg

DRUGS (1)
  1. BUDESONIDE\FORMOTEROL\GLYCOPYRRONIUM [Suspect]
     Active Substance: BUDESONIDE\FORMOTEROL\GLYCOPYRRONIUM
     Indication: Chronic obstructive pulmonary disease
     Route: 055

REACTIONS (5)
  - Mouth ulceration [Unknown]
  - Dyspnoea [Unknown]
  - Intentional underdose [Unknown]
  - Wrong technique in device usage process [Unknown]
  - Device delivery system issue [Unknown]
